FAERS Safety Report 6187271-9 (Version None)
Quarter: 2009Q2

REPORT INFORMATION
  Report Type: 
  Country: None (occurrence: None)
  Receive Date: 20090512
  Receipt Date: 20090505
  Transmission Date: 20091009
  Serious: Yes (Hospitalization)
  Sender: FDA-Public Use
  Company Number: US-CVT-090246

PATIENT

DRUGS (5)
  1. RANEXA [Suspect]
     Indication: CHEST PAIN
     Dosage: UNK, BID
     Route: 048
     Dates: start: 20090420, end: 20090401
  2. NITRO-DUR [Concomitant]
     Dates: start: 20090420
  3. COUMADIN [Concomitant]
  4. LIPITOR                            /01326101/ [Concomitant]
  5. POTASSIUM CHLORIDE [Concomitant]

REACTIONS (2)
  - DYSPNOEA [None]
  - PNEUMONIA [None]
